FAERS Safety Report 7731154-7 (Version None)
Quarter: 2011Q3

REPORT INFORMATION
  Report Type: 
  Country: None (occurrence: None)
  Receive Date: 20110906
  Receipt Date: 20110906
  Transmission Date: 20111222
  Serious: Yes (Hospitalization)
  Sender: FDA-Public Use
  Company Number: None

PATIENT
  Age: 76 Year
  Sex: Male
  Weight: 87.996 kg

DRUGS (1)
  1. EXELON [Suspect]
     Dosage: 1 PATCH
     Dates: start: 20110802, end: 20110816

REACTIONS (2)
  - HALLUCINATION [None]
  - CONFUSIONAL STATE [None]
